FAERS Safety Report 6078500-0 (Version None)
Quarter: 2009Q1

REPORT INFORMATION
  Report Type: 
  Country: None (occurrence: None)
  Receive Date: 20090211
  Receipt Date: 20090211
  Transmission Date: 20090719
  Serious: Yes (Life-Threatening, Hospitalization)
  Sender: FDA-Public Use
  Company Number: None

PATIENT
  Sex: Male
  Weight: 77.1115 kg

DRUGS (1)
  1. COUMADIN [Suspect]
     Indication: ATRIAL FIBRILLATION
     Dates: start: 20030815, end: 20030901

REACTIONS (3)
  - CARDIO-RESPIRATORY ARREST [None]
  - HAEMORRHAGIC STROKE [None]
  - HEMIPLEGIA [None]
